FAERS Safety Report 17779514 (Version 5)
Quarter: 2020Q3

REPORT INFORMATION
  Report Type: Spontaneous
  Country: US (occurrence: US)
  Receive Date: 20200513
  Receipt Date: 20200902
  Transmission Date: 20201102
  Serious: Yes (Other)
  Sender: FDA-Public Use
  Company Number: US-SA-2020SA119385

PATIENT

DRUGS (13)
  1. CLARITIN [Concomitant]
     Active Substance: LORATADINE
     Dosage: 10 MG, PRN
     Route: 048
  2. DULERA [Concomitant]
     Active Substance: FORMOTEROL FUMARATE DIHYDRATE\MOMETASONE FUROATE
     Dosage: 1 PFU, QD
     Route: 048
  3. SINGULAIR [Concomitant]
     Active Substance: MONTELUKAST SODIUM
     Dosage: 10 MG, QD
     Route: 048
  4. NAPROXENO [NAPROXEN SODIUM] [Concomitant]
     Active Substance: NAPROXEN SODIUM
     Dosage: 550 MG, QD
     Route: 048
  5. VENTOLIN HFA [Concomitant]
     Active Substance: ALBUTEROL SULFATE
     Dosage: 1 PFU, PRN
     Route: 048
  6. HYDROCORTISONE. [Concomitant]
     Active Substance: HYDROCORTISONE
     Dosage: UNK UNK, QD
     Route: 061
  7. PROVENTIL [Concomitant]
     Active Substance: ALBUTEROL
     Dosage: 2.5 MG, PRN
  8. DUPIXENT [Suspect]
     Active Substance: DUPILUMAB
     Indication: ASTHMA
     Dosage: 1 DF, QOW
     Dates: start: 201904
  9. SPIRIVA [Concomitant]
     Active Substance: TIOTROPIUM BROMIDE MONOHYDRATE
     Dosage: 1 PFU, QD
     Route: 048
  10. AMBIEN [Concomitant]
     Active Substance: ZOLPIDEM TARTRATE
     Dosage: 10 MG, HS
     Route: 048
  11. ULTRAM ER [Concomitant]
     Active Substance: TRAMADOL HYDROCHLORIDE
     Dosage: 50 MG, PRN
     Route: 048
  12. PRILOSEC [Concomitant]
     Active Substance: OMEPRAZOLE MAGNESIUM
     Dosage: 40 MG, QD
     Route: 048
  13. ATARAX [Concomitant]
     Active Substance: HYDROXYZINE HYDROCHLORIDE
     Dosage: 25 MG, PRN
     Route: 048

REACTIONS (42)
  - Rash erythematous [Unknown]
  - Dysphonia [Unknown]
  - Dyspnoea [Unknown]
  - Rash [Unknown]
  - Joint swelling [Recovering/Resolving]
  - Arthralgia [Unknown]
  - Peripheral swelling [Recovering/Resolving]
  - Contusion [Unknown]
  - Joint swelling [Unknown]
  - Pruritus [Recovering/Resolving]
  - Fatigue [Recovering/Resolving]
  - Proctalgia [Unknown]
  - Nervousness [Unknown]
  - Eating disorder [Recovering/Resolving]
  - Rheumatoid arthritis [Unknown]
  - Cellulitis [Recovering/Resolving]
  - Pain in extremity [Recovering/Resolving]
  - Dysphagia [Unknown]
  - Chest discomfort [Unknown]
  - Wheezing [Unknown]
  - Dyspepsia [Unknown]
  - Pollakiuria [Unknown]
  - Dry mouth [Unknown]
  - Dizziness [Recovering/Resolving]
  - Hernia repair [Unknown]
  - Peripheral swelling [Unknown]
  - Hyperhidrosis [Unknown]
  - Dry eye [Recovering/Resolving]
  - Palpitations [Unknown]
  - Abdominal distension [Unknown]
  - Myalgia [Unknown]
  - Pruritus [Unknown]
  - Burning sensation [Recovering/Resolving]
  - Visual impairment [Unknown]
  - Back pain [Unknown]
  - Disturbance in attention [Unknown]
  - Anxiety [Unknown]
  - Erythema [Unknown]
  - Musculoskeletal stiffness [Recovering/Resolving]
  - Eye pain [Unknown]
  - Testicular pain [Unknown]
  - Sleep disorder [Unknown]

NARRATIVE: CASE EVENT DATE: 20200710
